FAERS Safety Report 6698676-1 (Version None)
Quarter: 2010Q2

REPORT INFORMATION
  Report Type: 
  Country: None (occurrence: None)
  Receive Date: 20100427
  Receipt Date: 20091023
  Transmission Date: 20101027
  Serious: No
  Sender: FDA-Public Use
  Company Number: US-ASTRAZENECA-2009SE22218

PATIENT
  Sex: Female

DRUGS (2)
  1. ZOMIG [Suspect]
     Indication: MIGRAINE
     Route: 048
  2. ZOMIG [Suspect]
     Indication: CLUSTER HEADACHE
     Route: 048

REACTIONS (4)
  - DRUG DOSE OMISSION [None]
  - ILL-DEFINED DISORDER [None]
  - MIGRAINE [None]
  - PAIN [None]
